FAERS Safety Report 4681460-8 (Version None)
Quarter: 2005Q2

REPORT INFORMATION
  Report Type: 
  Country: None (occurrence: None)
  Receive Date: 20050601
  Receipt Date: 20050512
  Transmission Date: 20051028
  Serious: Yes (Hospitalization)
  Sender: FDA-Public Use
  Company Number: US_0411107624

PATIENT
  Sex: Female
  Weight: 109 kg

DRUGS (26)
  1. ZYPREXA [Suspect]
     Indication: BIPOLAR DISORDER
     Dosage: 20 MG
     Dates: start: 19990413, end: 20040113
  2. TENORMIN [Concomitant]
  3. INDERAL [Concomitant]
  4. SEROQUEL [Concomitant]
  5. RISPERDAL [Concomitant]
  6. DEPAKOTE [Concomitant]
  7. PAXIL [Concomitant]
  8. SYMBYAX [Concomitant]
  9. GLYBURIDE [Concomitant]
  10. TOPAMAX [Concomitant]
  11. SYNTHROID (LEVORHYROXINE SODIUM) [Concomitant]
  12. NAPROSYN (NAPROXEN MEPHA) [Concomitant]
  13. GLUCOPHAGE [Concomitant]
  14. ROFECOXIB [Concomitant]
  15. FLURAZEPAM [Concomitant]
  16. CHLORDIAZEPOXIDE [Concomitant]
  17. TOLTERODINE [Concomitant]
  18. FUROSEMIDE [Concomitant]
  19. DONEPEZIL HCL [Concomitant]
  20. GLYBURIDE [Concomitant]
  21. TRIHEXYPHENIDYL HCL [Concomitant]
  22. VALSARTAN [Concomitant]
  23. HYDROCHLOROTHIAZIDE [Concomitant]
  24. HYDROXYZINE [Concomitant]
  25. PAROXETINE HCL [Concomitant]
  26. DETROL LA [Concomitant]

REACTIONS (8)
  - BACTERAEMIA [None]
  - BLOOD GLUCOSE INCREASED [None]
  - BLOOD TRIGLYCERIDES INCREASED [None]
  - CONDITION AGGRAVATED [None]
  - HYPOTHYROIDISM [None]
  - PYELONEPHRITIS [None]
  - TARDIVE DYSKINESIA [None]
  - TREATMENT NONCOMPLIANCE [None]
